FAERS Safety Report 5942147-4 (Version None)
Quarter: 2008Q4

REPORT INFORMATION
  Report Type: 
  Country: None (occurrence: None)
  Receive Date: 20081105
  Receipt Date: 20081027
  Transmission Date: 20090506
  Serious: Yes (Hospitalization)
  Sender: FDA-Public Use
  Company Number: US-AVENTIS-200820212GDDC

PATIENT
  Age: 58 Year
  Sex: Female
  Weight: 92.08 kg

DRUGS (3)
  1. DOCETAXEL [Suspect]
     Route: 042
     Dates: end: 20081020
  2. CYTOXAN [Suspect]
     Route: 042
     Dates: end: 20081020
  3. NEULASTA [Concomitant]
     Dates: end: 20081021

REACTIONS (2)
  - ABDOMINAL PAIN [None]
  - HYPOXIA [None]
